FAERS Safety Report 24236324 (Version 1)
Quarter: 2024Q3

REPORT INFORMATION
  Report Type: Spontaneous
  Country: US (occurrence: US)
  Receive Date: 20240822
  Receipt Date: 20240822
  Transmission Date: 20241017
  Serious: No
  Sender: CIPLA
  Company Number: US-CIPLA LTD.-2024US06604

PATIENT

DRUGS (5)
  1. EMTRICITABINE\TENOFOVIR [Suspect]
     Active Substance: EMTRICITABINE\TENOFOVIR
     Indication: Antiretroviral therapy
     Dosage: TOTAL DAILY DOSE OF 1 (UNSPECIFIED UNITS) (COURSE 1)
     Route: 048
     Dates: start: 2022
  2. DOLUTEGRAVIR [Suspect]
     Active Substance: DOLUTEGRAVIR
     Indication: Antiretroviral therapy
     Dosage: TOTAL DAILY DOSE OF 1 (UNSPECIFIED UNITS) (COURSE 1)
     Route: 048
     Dates: start: 2022
  3. LAMIVUDINE [Suspect]
     Active Substance: LAMIVUDINE
     Indication: Antiretroviral therapy
     Dosage: TOTAL DAILY DOSE OF 1 (UNSPECIFIED UNITS) (COURSE 1)
     Route: 048
     Dates: start: 2022
  4. ZIDOVUDINE [Suspect]
     Active Substance: ZIDOVUDINE
     Indication: Antiretroviral therapy
     Dosage: TOTAL DAILY DOSE OF 2 (UNSPECIFIED UNITS) (COURSE 1)
     Route: 042
     Dates: start: 202306, end: 202306
  5. ZIDOVUDINE [Suspect]
     Active Substance: ZIDOVUDINE
     Dosage: TOTAL DAILY DOSE OF 1 (UNSPECIFIED UNITS) (COURSE 2)
     Route: 042
     Dates: start: 202306, end: 202306

REACTIONS (2)
  - Exposure during pregnancy [Unknown]
  - No adverse event [Unknown]
